FAERS Safety Report 15670862 (Version 2)
Quarter: 2018Q4

REPORT INFORMATION
  Report Type: Spontaneous
  Country: JP (occurrence: JP)
  Receive Date: 20181129
  Receipt Date: 20181129
  Transmission Date: 20190205
  Serious: Yes (Other)
  Sender: FDA-Public Use
  Company Number: PHJP2018JP020016

PATIENT
  Age: 18 Year
  Sex: Female
  Weight: 43.9 kg

DRUGS (4)
  1. REVOLADE TAB [Suspect]
     Active Substance: ELTROMBOPAG
     Dosage: 100 MG, UNK
     Route: 048
  2. CICLOSPORIN [Suspect]
     Active Substance: CYCLOSPORINE
     Indication: APLASTIC ANAEMIA
     Dosage: UNK
     Route: 048
  3. REVOLADE TAB [Suspect]
     Active Substance: ELTROMBOPAG
     Indication: APLASTIC ANAEMIA
     Dosage: 75 MG, UNK
     Route: 048
  4. ANTILYMPHOCYTE IMMUNOGLOBULIN (RABBIT) [Concomitant]
     Active Substance: LAPINE T-LYMPHOCYTE IMMUNE GLOBULIN
     Indication: PRODUCT USED FOR UNKNOWN INDICATION
     Dosage: 3.75 MG/KG, UNK
     Route: 065

REACTIONS (6)
  - Alanine aminotransferase increased [Recovered/Resolved]
  - Iron overload [Unknown]
  - Hypertrichosis [Unknown]
  - Febrile neutropenia [Unknown]
  - Haemolysis [Unknown]
  - Blood bilirubin unconjugated increased [Not Recovered/Not Resolved]
